FAERS Safety Report 4494225-7 (Version None)
Quarter: 2004Q4

REPORT INFORMATION
  Report Type: 
  Country: None (occurrence: None)
  Receive Date: 20041102
  Receipt Date: 20041015
  Transmission Date: 20050328
  Serious: Yes (Hospitalization)
  Sender: FDA-Public Use
  Company Number: F01200403203

PATIENT
  Age: 67 Year
  Sex: Female

DRUGS (7)
  1. (OXALIPLATIN) - SOLUTION - 191.1 MG [Suspect]
     Indication: COLORECTAL CANCER METASTATIC
     Dosage: 191.1 MG Q3W, INTRAVENOUS NOS
     Route: 042
  2. (CAPECITABINE) - TABLET - 1500 MG [Suspect]
     Dosage: 1500 MG TWICE DAILY PER ORAL FROM D1 TO D14 ORAL
     Route: 048
  3. (PLACEBO) - SOLUTION - 1 UNIT [Suspect]
     Dosage: 1 UNIT Q2W INTRAVENOUS NOS
     Route: 042
  4. BROMAZEPAM [Concomitant]
  5. OMEPRAZOLE [Concomitant]
  6. CALCIUM [Concomitant]
  7. PLANTAGO OVATA (PSYLLIUM HUSK) [Concomitant]

REACTIONS (4)
  - BALANCE DISORDER [None]
  - FALL [None]
  - LUMBAR VERTEBRAL FRACTURE [None]
  - TREMOR [None]
